FAERS Safety Report 23340186 (Version 3)
Quarter: 2025Q4

REPORT INFORMATION
  Report Type: Report from Study
  Country: CO (occurrence: CO)
  Receive Date: 20231227
  Receipt Date: 20251114
  Transmission Date: 20260118
  Serious: No
  Sender: BIOGEN
  Company Number: CO-BIOGEN-2023BI01221577

PATIENT
  Age: 41 Year
  Sex: Female
  Weight: 72 kg

DRUGS (11)
  1. TYSABRI [Suspect]
     Active Substance: NATALIZUMAB
     Indication: Multiple sclerosis
     Dates: start: 20220418
  2. SERTRALINE [Concomitant]
     Active Substance: SERTRALINE HYDROCHLORIDE
     Indication: Affect lability
     Dosage: DOSAGE TEXT:START DATE ALSO REPORTED AS JUL-2023
     Dates: start: 2021
  3. SERTRALINE [Concomitant]
     Active Substance: SERTRALINE HYDROCHLORIDE
     Indication: Insomnia
  4. VITAMIN D [Concomitant]
     Active Substance: VITAMIN D NOS
     Indication: Product used for unknown indication
     Dates: start: 20240202
  5. VITAMIN B12 [Concomitant]
     Active Substance: CYANOCOBALAMIN
     Indication: Product used for unknown indication
     Dates: start: 202312
  6. EVALAX [Concomitant]
     Indication: Haemorrhoids
     Dosage: DOSAGE TEXT:AS REQUIRED. POLYETHYLENE GLYCOL 3350
     Dates: start: 2006
  7. EVALAX [Concomitant]
  8. ACETAMINOPHEN AND CAFFEINE [Concomitant]
     Active Substance: ACETAMINOPHEN\CAFFEINE
     Indication: Headache
  9. PREGABALIN [Concomitant]
     Active Substance: PREGABALIN
     Indication: Migraine
     Dosage: DOSAGE TEXT:UNKNOWN
  10. QUETIAPINE [Concomitant]
     Active Substance: QUETIAPINE
     Indication: Migraine
     Dates: start: 2021
  11. QUETIAPINE [Concomitant]
     Active Substance: QUETIAPINE
     Indication: Insomnia
     Dosage: DOSAGE TEXT:25 MG (1 PER DAY OR 2 PER DAY OR AS NEEDED)

REACTIONS (15)
  - Cerebellar ataxia [Not Recovered/Not Resolved]
  - Head injury [Not Recovered/Not Resolved]
  - Limb injury [Not Recovered/Not Resolved]
  - Joint injury [Not Recovered/Not Resolved]
  - Contusion [Not Recovered/Not Resolved]
  - Mobility decreased [Unknown]
  - Gait disturbance [Unknown]
  - Multiple sclerosis [Unknown]
  - Fatigue [Recovered/Resolved]
  - Asthenia [Not Recovered/Not Resolved]
  - Vertigo [Not Recovered/Not Resolved]
  - Peroneal nerve palsy [Not Recovered/Not Resolved]
  - Multiple sclerosis relapse [Not Recovered/Not Resolved]
  - Fall [Recovered/Resolved]
  - Headache [Unknown]

NARRATIVE: CASE EVENT DATE: 20220101
